FAERS Safety Report 6304129-2 (Version None)
Quarter: 2009Q3

REPORT INFORMATION
  Report Type: 
  Country: None (occurrence: None)
  Receive Date: 20090806
  Receipt Date: 20090729
  Transmission Date: 20100115
  Serious: Yes (Hospitalization, Other)
  Sender: FDA-Public Use
  Company Number: 09US002842

PATIENT
  Age: 17 Year
  Sex: Male

DRUGS (1)
  1. DIPHENHYDRAMINE HYDROCHLORIDE [Suspect]
     Indication: DRUG ABUSE
     Dosage: 750 MG, SINGLE, ORAL
     Route: 048
     Dates: start: 20090729, end: 20090729

REACTIONS (4)
  - INTENTIONAL OVERDOSE [None]
  - LETHARGY [None]
  - OPIATES POSITIVE [None]
  - SOMNOLENCE [None]
